FAERS Safety Report 24211345 (Version 2)
Quarter: 2024Q3

REPORT INFORMATION
  Report Type: Report from Study
  Country: US (occurrence: US)
  Receive Date: 20240814
  Receipt Date: 20240905
  Transmission Date: 20241017
  Serious: Yes (Hospitalization, Other)
  Sender: BAYER
  Company Number: US-BAYER-2024A106861

PATIENT
  Age: 84 Year
  Sex: Female
  Weight: 40.816 kg

DRUGS (20)
  1. ADEMPAS [Suspect]
     Active Substance: RIOCIGUAT
     Indication: Pulmonary arterial hypertension
     Dosage: UNK
     Dates: start: 20180404
  2. ADEMPAS [Suspect]
     Active Substance: RIOCIGUAT
     Indication: Pulmonary hypertension
     Dosage: 2 MG, TID
     Route: 048
  3. ADEMPAS [Suspect]
     Active Substance: RIOCIGUAT
     Indication: Pulmonary arterial hypertension
     Dosage: 2.5 MG, TID
     Route: 048
     Dates: start: 202012
  4. MARINOL [Concomitant]
     Active Substance: DRONABINOL
  5. CLARITIN-D NOS [Concomitant]
     Active Substance: LORATADINE\PSEUDOEPHEDRINE SULFATE
  6. NEURONTIN [Concomitant]
     Active Substance: GABAPENTIN
  7. MELOXICAM [Concomitant]
     Active Substance: MELOXICAM
  8. FAMOTIDINE [Concomitant]
     Active Substance: FAMOTIDINE
  9. MIDODRINE HYDROCHLORIDE [Concomitant]
     Active Substance: MIDODRINE HYDROCHLORIDE
  10. IMODIUM [Concomitant]
     Active Substance: LOPERAMIDE HYDROCHLORIDE
  11. PHENERGAN [Concomitant]
     Active Substance: PROMETHAZINE HYDROCHLORIDE
  12. SPIRONOLACTONE [Concomitant]
     Active Substance: SPIRONOLACTONE
  13. PANTOPRAZOLE SODIUM [Concomitant]
     Active Substance: PANTOPRAZOLE SODIUM
  14. SOTATERCEPT [Concomitant]
     Active Substance: SOTATERCEPT
  15. OXYGEN [Concomitant]
     Active Substance: OXYGEN
  16. REMODULIN [Concomitant]
     Active Substance: TREPROSTINIL
  17. FUROSEMIDE [Concomitant]
     Active Substance: FUROSEMIDE
  18. LETAIRIS [Concomitant]
     Active Substance: AMBRISENTAN
  19. ONDANSETRON HYDROCHLORIDE [Concomitant]
     Active Substance: ONDANSETRON HYDROCHLORIDE
  20. BUMETANIDE [Concomitant]
     Active Substance: BUMETANIDE

REACTIONS (9)
  - Hypervolaemia [None]
  - Swelling [None]
  - Fluid retention [None]
  - Device occlusion [None]
  - Blindness [None]
  - Peripheral nerve injury [None]
  - Dyspnoea exertional [None]
  - Dyspnoea [None]
  - Gait disturbance [None]

NARRATIVE: CASE EVENT DATE: 20240701
